FAERS Safety Report 15050292 (Version 1)
Quarter: 2018Q2

REPORT INFORMATION
  Report Type: Spontaneous
  Country: US (occurrence: US)
  Receive Date: 20180622
  Receipt Date: 20180622
  Transmission Date: 20180711
  Serious: No
  Sender: FDA-Public Use
  Company Number: US-BAYER-2018-114803

PATIENT
  Age: 77 Year
  Sex: Female

DRUGS (5)
  1. ALEVE [Suspect]
     Active Substance: NAPROXEN SODIUM
     Indication: PAIN
     Dosage: 500MG CUT INTO FOURTHS
     Route: 048
  2. ALEVE [Suspect]
     Active Substance: NAPROXEN SODIUM
     Indication: OSTEOARTHRITIS
  3. CALTRATE +D [CALCIUM CARBONATE,VITAMIN D NOS] [Concomitant]
     Indication: MUSCULOSKELETAL DISORDER
     Dosage: 1 DF, UNK
  4. CENTRUM SILVER [Concomitant]
     Active Substance: MINERALS\VITAMINS
     Indication: VITAMIN SUPPLEMENTATION
     Dosage: 1 DF, ONCE
     Route: 048
  5. OMEGA 3 FISH OIL [Concomitant]
     Active Substance: FISH OIL\OMEGA-3 FATTY ACIDS
     Indication: CARDIAC DISORDER
     Dosage: 1 DF, ONCE
     Route: 048

REACTIONS (3)
  - Wrong technique in product usage process [None]
  - Product use in unapproved indication [Unknown]
  - Incorrect drug administration duration [Unknown]
